FAERS Safety Report 17283559 (Version 1)
Quarter: 2020Q1

REPORT INFORMATION
  Report Type: Spontaneous
  Country: US (occurrence: US)
  Receive Date: 20200117
  Receipt Date: 20200117
  Transmission Date: 20200409
  Serious: Yes (Other)
  Sender: FDA-Public Use
  Company Number: US-APOTEX-2020AP005669

PATIENT
  Age: 70 Year
  Sex: Male

DRUGS (1)
  1. DASATINIB. [Suspect]
     Active Substance: DASATINIB
     Indication: CHRONIC MYELOID LEUKAEMIA
     Dosage: 20 MG, QD
     Route: 065
     Dates: start: 201411

REACTIONS (3)
  - Neurotoxicity [Recovering/Resolving]
  - Axonal neuropathy [Recovering/Resolving]
  - Demyelinating polyneuropathy [Recovering/Resolving]

NARRATIVE: CASE EVENT DATE: 201607
